FAERS Safety Report 10511635 (Version 1)
Quarter: 2014Q3

REPORT INFORMATION
  Report Type: Spontaneous
  Country: US (occurrence: None)
  Receive Date: 20140915
  Receipt Date: 20140915
  Transmission Date: 20150326
  Serious: Yes (Other)
  Sender: FDA-Public Use
  Company Number: 2014-US-000101

PATIENT
  Age: 37 Year
  Sex: Male
  Weight: 108.8 kg

DRUGS (5)
  1. XYREM [Suspect]
     Active Substance: SODIUM OXYBATE
     Indication: SOMNOLENCE
     Route: 048
     Dates: start: 201311, end: 201312
  2. NUVIGIL [Concomitant]
     Active Substance: ARMODAFINIL
  3. TRILIPIX [Concomitant]
     Active Substance: FENOFIBRIC ACID
  4. MULTIVITAMIN (VITAMINS NOS) [Concomitant]
     Active Substance: VITAMINS
  5. FISH OIL (FISH OIL) [Concomitant]
     Active Substance: FISH OIL

REACTIONS (5)
  - Depression [None]
  - Somnolence [None]
  - Drug ineffective [None]
  - Off label use [None]
  - Condition aggravated [None]

NARRATIVE: CASE EVENT DATE: 201312
